FAERS Safety Report 11193527 (Version 2)
Quarter: 2015Q4

REPORT INFORMATION
  Report Type: Spontaneous
  Country: US (occurrence: US)
  Receive Date: 20150616
  Receipt Date: 20151028
  Transmission Date: 20160304
  Serious: Yes (Hospitalization)
  Sender: FDA-Public Use
  Company Number: US-BAYER-2015-350292

PATIENT
  Age: 29 Year
  Sex: Female
  Weight: 104.31 kg

DRUGS (4)
  1. AMBIEN [Concomitant]
     Active Substance: ZOLPIDEM TARTRATE
  2. MIRENA [Suspect]
     Active Substance: LEVONORGESTREL
     Indication: CONTRACEPTION
     Dosage: 20 MCG/24HR, CONT
     Route: 015
     Dates: start: 20060911, end: 20071018
  3. ALBUTEROL. [Concomitant]
     Active Substance: ALBUTEROL
  4. IBUPROFEN. [Concomitant]
     Active Substance: IBUPROFEN

REACTIONS (9)
  - Uterine perforation [None]
  - Injury [None]
  - Anxiety [None]
  - Emotional distress [None]
  - Fear of disease [None]
  - Pain [None]
  - Depression [None]
  - Device issue [None]
  - Device failure [None]

NARRATIVE: CASE EVENT DATE: 200709
